FAERS Safety Report 10214739 (Version 2)
Quarter: 2014Q2

REPORT INFORMATION
  Report Type: Spontaneous
  Country: US (occurrence: US)
  Receive Date: 20140603
  Receipt Date: 20140620
  Transmission Date: 20141212
  Serious: No
  Sender: FDA-Public Use
  Company Number: US-BAYER-2014-080619

PATIENT
  Age: 72 Year
  Sex: Female
  Weight: 58.96 kg

DRUGS (7)
  1. ALKA-SELTZER HEARTBURN RELIEFCHEWS ASSORTED FRUIT [Suspect]
     Indication: DYSPEPSIA
     Dosage: 1-2 DF, UNK
     Route: 048
     Dates: start: 20140524
  2. ALEVE CAPLET [Suspect]
     Indication: ANALGESIC THERAPY
     Dosage: 1 DF, PRN
     Route: 048
     Dates: start: 2014
  3. METFORMIN [Concomitant]
  4. TYLENOL [PARACETAMOL] [Concomitant]
  5. PEPTO BISMOL [Concomitant]
  6. ROLAIDS [CALCIUM CARBONATE,MAGNESIUM HYDROXIDE] [Concomitant]
  7. GLUCERNA [Concomitant]

REACTIONS (3)
  - Faeces discoloured [Recovered/Resolved]
  - Faeces discoloured [Not Recovered/Not Resolved]
  - Incorrect drug administration duration [None]
